FAERS Safety Report 20084467 (Version 3)
Quarter: 2023Q1

REPORT INFORMATION
  Report Type: Spontaneous
  Country: US (occurrence: US)
  Receive Date: 20211118
  Receipt Date: 20230110
  Transmission Date: 20230417
  Serious: No
  Sender: FDA-Public Use
  Company Number: US-BRISTOL-MYERS SQUIBB COMPANY-BMS-2021-122994

PATIENT
  Age: 79 Year
  Sex: Male

DRUGS (2)
  1. ORENCIA [Suspect]
     Active Substance: ABATACEPT
     Indication: Rheumatoid arthritis
     Dosage: BATCH NUMBER: BCUF05A EXPIRE DATE: 31- MAY-2023
     Route: 058
     Dates: start: 20161118
  2. ORENCIA [Suspect]
     Active Substance: ABATACEPT
     Dosage: ONGOING
     Route: 058
     Dates: start: 201611

REACTIONS (2)
  - Joint swelling [Unknown]
  - Arthralgia [Unknown]

NARRATIVE: CASE EVENT DATE: 20211001
